FAERS Safety Report 4340103-3 (Version None)
Quarter: 2004Q2

REPORT INFORMATION
  Report Type: 
  Country: None (occurrence: None)
  Receive Date: 20040416
  Receipt Date: 20040407
  Transmission Date: 20050107
  Serious: Yes (Hospitalization, Disabling)
  Sender: FDA-Public Use
  Company Number: DE-BRISTOL-MYERS SQUIBB COMPANY-12553343

PATIENT
  Age: 65 Year
  Sex: Female
  Weight: 59 kg

DRUGS (2)
  1. CARBOPLATIN [Suspect]
     Indication: UTERINE CANCER
     Route: 042
     Dates: start: 20040124, end: 20040124
  2. DOXORUBICIN HYDROCHLORIDE [Suspect]
     Indication: UTERINE CANCER
     Route: 042
     Dates: start: 20040124, end: 20040124

REACTIONS (3)
  - GENERAL PHYSICAL HEALTH DETERIORATION [None]
  - OESOPHAGEAL CANDIDIASIS [None]
  - PANCYTOPENIA [None]
